FAERS Safety Report 7100507-2 (Version None)
Quarter: 2010Q4

REPORT INFORMATION
  Report Type: 
  Country: None (occurrence: None)
  Receive Date: 20101113
  Receipt Date: 20100211
  Transmission Date: 20110411
  Serious: Yes (Other)
  Sender: FDA-Public Use
  Company Number: US-ALLERGAN-1001850US

PATIENT
  Age: 56 Year
  Sex: Female

DRUGS (1)
  1. BOTOXA? [Suspect]
     Indication: MUSCLE SPASTICITY
     Dosage: UNK
     Route: 030
     Dates: start: 20100126, end: 20100126

REACTIONS (2)
  - EYELID PTOSIS [None]
  - MUSCULAR WEAKNESS [None]
